FAERS Safety Report 9868246 (Version 2)
Quarter: 2014Q1

REPORT INFORMATION
  Report Type: Report from Study
  Country: DE (occurrence: DE)
  Receive Date: 20140204
  Receipt Date: 20140204
  Transmission Date: 20141002
  Serious: Yes (Hospitalization)
  Sender: FDA-Public Use
  Company Number: PHHO2010DE12301

PATIENT
  Sex: 0

DRUGS (1)
  1. SOM230 [Suspect]
     Indication: CARCINOID SYNDROME
     Route: 030
     Dates: start: 20100716

REACTIONS (4)
  - Hyperglycaemia [Recovering/Resolving]
  - Weight decreased [Recovering/Resolving]
  - Thirst [Recovering/Resolving]
  - Polyuria [Recovering/Resolving]
